FAERS Safety Report 9472693 (Version 1)
Quarter: 2013Q3

REPORT INFORMATION
  Report Type: Report from Study
  Country: US (occurrence: US)
  Receive Date: 20130823
  Receipt Date: 20130823
  Transmission Date: 20140515
  Serious: Yes (Other)
  Sender: FDA-Public Use
  Company Number: US-SANOFI-AVENTIS-2013SA083560

PATIENT
  Sex: Female

DRUGS (2)
  1. AUBAGIO [Suspect]
     Route: 048
  2. COUMADIN [Suspect]
     Route: 065

REACTIONS (1)
  - International normalised ratio increased [Unknown]
